FAERS Safety Report 22217758 (Version 1)
Quarter: 2023Q2

REPORT INFORMATION
  Report Type: Spontaneous
  Country: CN (occurrence: None)
  Receive Date: 20230417
  Receipt Date: 20230417
  Transmission Date: 20230722
  Serious: Yes (Other)
  Sender: FDA-Public Use
  Company Number: CN-ROCHE-3330672

PATIENT
  Age: 75 Year
  Sex: Female

DRUGS (9)
  1. MABTHERA [Suspect]
     Active Substance: RITUXIMAB
     Indication: B-cell lymphoma
     Dosage: 02 DEC 2022, 23 DEC 2022
     Route: 065
     Dates: start: 20221202
  2. MABTHERA [Suspect]
     Active Substance: RITUXIMAB
     Dosage: 28 FEB 2023, 22 MAR 2023
     Route: 065
     Dates: start: 20230228
  3. CYCLOPHOSPHAMIDE [Concomitant]
     Active Substance: CYCLOPHOSPHAMIDE
     Indication: B-cell lymphoma
     Dosage: 02 DEC 2022, 23 DEC 2022
     Route: 065
     Dates: start: 20221202
  4. CYCLOPHOSPHAMIDE [Concomitant]
     Active Substance: CYCLOPHOSPHAMIDE
     Dosage: 28 FEB 2023, 22 MAR 2023
     Route: 065
     Dates: start: 20230228
  5. VINCRISTINE [Concomitant]
     Active Substance: VINCRISTINE
     Indication: B-cell lymphoma
     Dosage: 02 DEC 2022, 23 DEC 2022
     Route: 065
     Dates: start: 20221202
  6. VINCRISTINE [Concomitant]
     Active Substance: VINCRISTINE
     Dosage: 28 FEB 2023, 22 MAR 2023
     Route: 065
     Dates: start: 20230228
  7. PREDNISONE [Concomitant]
     Active Substance: PREDNISONE
     Indication: B-cell lymphoma
     Dosage: 02 DEC 2022, 23 DEC 2022
     Route: 065
     Dates: start: 20221202
  8. PREDNISONE [Concomitant]
     Active Substance: PREDNISONE
     Dosage: 28 FEB 2023, 22 MAR 2023
     Route: 065
     Dates: start: 20230228
  9. NIFEDIPINE [Concomitant]
     Active Substance: NIFEDIPINE

REACTIONS (3)
  - COVID-19 [Unknown]
  - Pneumonia [Unknown]
  - Intentional product use issue [Unknown]

NARRATIVE: CASE EVENT DATE: 20230111
